FAERS Safety Report 5665438-3 (Version None)
Quarter: 2008Q1

REPORT INFORMATION
  Report Type: 
  Country: None (occurrence: None)
  Receive Date: 20080314
  Receipt Date: 20071207
  Transmission Date: 20080703
  Serious: No
  Sender: FDA-Public Use
  Company Number: US-ABBOTT-07P-163-0428145-00

PATIENT
  Sex: Female
  Weight: 44.492 kg

DRUGS (4)
  1. HUMIRA [Suspect]
     Indication: CROHN'S DISEASE
     Route: 058
     Dates: start: 20071107, end: 20071107
  2. HUMIRA [Suspect]
     Route: 058
     Dates: start: 20071122, end: 20071122
  3. HUMIRA [Suspect]
     Dates: end: 20071206
  4. VICODIN [Concomitant]
     Indication: PAIN
     Route: 048

REACTIONS (5)
  - EPISTAXIS [None]
  - GINGIVAL BLEEDING [None]
  - NASAL DISCOMFORT [None]
  - RHINITIS [None]
  - SKIN IRRITATION [None]
